FAERS Safety Report 7984781-6 (Version None)
Quarter: 2011Q4

REPORT INFORMATION
  Report Type: 
  Country: None (occurrence: None)
  Receive Date: 20111214
  Receipt Date: 20111201
  Transmission Date: 20120403
  Serious: Yes (Disabling)
  Sender: FDA-Public Use
  Company Number: 2011-2550

PATIENT
  Age: 57 Year
  Sex: Female

DRUGS (14)
  1. DYSPORT [Suspect]
     Indication: TENDONITIS
     Dosage: SEE IMAGE
     Route: 030
     Dates: start: 20091102, end: 20091102
  2. DYSPORT [Suspect]
     Indication: OFF LABEL USE
     Dosage: SEE IMAGE
     Route: 030
     Dates: start: 20091102, end: 20091102
  3. DYSPORT [Suspect]
     Indication: TENDONITIS
     Dosage: SEE IMAGE
     Route: 030
     Dates: start: 20110606, end: 20110606
  4. DYSPORT [Suspect]
     Indication: OFF LABEL USE
     Dosage: SEE IMAGE
     Route: 030
     Dates: start: 20110606, end: 20110606
  5. DYSPORT [Suspect]
     Indication: TENDONITIS
     Dosage: SEE IMAGE
     Route: 030
     Dates: start: 20100906, end: 20100906
  6. DYSPORT [Suspect]
     Indication: OFF LABEL USE
     Dosage: SEE IMAGE
     Route: 030
     Dates: start: 20100906, end: 20100906
  7. DYSPORT [Suspect]
     Indication: TENDONITIS
     Dosage: SEE IMAGE
     Route: 030
     Dates: start: 20110307, end: 20110307
  8. DYSPORT [Suspect]
     Indication: OFF LABEL USE
     Dosage: SEE IMAGE
     Route: 030
     Dates: start: 20110307, end: 20110307
  9. DYSPORT [Suspect]
     Indication: TENDONITIS
     Dosage: SEE IMAGE
     Route: 030
     Dates: start: 20101213, end: 20101213
  10. DYSPORT [Suspect]
     Indication: OFF LABEL USE
     Dosage: SEE IMAGE
     Route: 030
     Dates: start: 20101213, end: 20101213
  11. TRAMADOL HCL [Concomitant]
  12. ACETAMINOPHEN [Concomitant]
  13. ASPIRIN [Concomitant]
  14. NSAIDS (NSAIDS) [Concomitant]

REACTIONS (7)
  - FATIGUE [None]
  - MUSCULAR WEAKNESS [None]
  - DYSPNOEA [None]
  - BOTULISM [None]
  - DYSPHONIA [None]
  - DYSPHAGIA [None]
  - TACHYCARDIA [None]
